FAERS Safety Report 4742592-9 (Version None)
Quarter: 2005Q3

REPORT INFORMATION
  Report Type: 
  Country: None (occurrence: None)
  Receive Date: 20050808
  Receipt Date: 20050725
  Transmission Date: 20060218
  Serious: Yes (Other)
  Sender: FDA-Public Use
  Company Number: USA0507102863

PATIENT
  Age: 73 Year
  Sex: Male

DRUGS (2)
  1. XIGRIS [Suspect]
     Indication: SEPSIS
     Dates: start: 20050701, end: 20050701
  2. VASOPRESSOR AGENTS [Concomitant]

REACTIONS (1)
  - HERPES SIMPLEX [None]
